FAERS Safety Report 6055844-X (Version None)
Quarter: 2009Q1

REPORT INFORMATION
  Report Type: 
  Country: None (occurrence: None)
  Receive Date: 20090128
  Receipt Date: 20090116
  Transmission Date: 20090719
  Serious: Yes (Other)
  Sender: FDA-Public Use
  Company Number: IT-GENENTECH-273494

PATIENT
  Sex: Female

DRUGS (1)
  1. AVASTIN [Suspect]
     Indication: MACULOPATHY
     Dosage: 0.5 ML, SINGLE
     Route: 031
     Dates: start: 20080721, end: 20080721

REACTIONS (2)
  - CORNEAL OEDEMA [None]
  - EYE DISORDER [None]
